FAERS Safety Report 16323368 (Version 2)
Quarter: 2019Q2

REPORT INFORMATION
  Report Type: Spontaneous
  Country: US (occurrence: FR)
  Receive Date: 20190517
  Receipt Date: 20190530
  Transmission Date: 20190711
  Serious: Yes (Other)
  Sender: FDA-Public Use
  Company Number: US-AMGEN-FRASP2019076330

PATIENT
  Age: 85 Year
  Sex: Male
  Weight: 75.28 kg

DRUGS (12)
  1. ARANESP [Suspect]
     Active Substance: DARBEPOETIN ALFA
     Indication: ANAEMIA OF CHRONIC DISEASE
     Dosage: 100 MICROGRAM, QMO
     Route: 065
     Dates: start: 201811
  2. ARANESP [Suspect]
     Active Substance: DARBEPOETIN ALFA
     Dosage: 150 MICROGRAM, QMO
     Route: 065
  3. COZAAR [Concomitant]
     Active Substance: LOSARTAN POTASSIUM
     Dosage: 25 MILLIGRAM, QD
     Route: 048
  4. ARANESP [Suspect]
     Active Substance: DARBEPOETIN ALFA
     Dosage: 200 MICROGRAM, QMO
     Route: 065
  5. NIZORAL [Concomitant]
     Active Substance: KETOCONAZOLE
  6. VELTASSA [Concomitant]
     Active Substance: PATIROMER
     Dosage: 8.4 GRAM PACKET, QD
     Route: 048
  7. CARDURA [Concomitant]
     Active Substance: DOXAZOSIN MESYLATE
     Dosage: UNK UNK, QD
     Route: 048
  8. RENAPLEX D [Concomitant]
     Dosage: UNK UNK, QD
     Route: 048
  9. ARANESP [Suspect]
     Active Substance: DARBEPOETIN ALFA
     Dosage: 100 MICROGRAM, QMO
     Route: 065
  10. IRON [Concomitant]
     Active Substance: IRON
     Dosage: UNK UNK, QD
     Route: 048
  11. NORVASC [Concomitant]
     Active Substance: AMLODIPINE BESYLATE
     Dosage: 10 MILLIGRAM, QD
     Route: 048
  12. AURYXIA [Concomitant]
     Active Substance: TETRAFERRIC TRICITRATE DECAHYDRATE
     Dosage: 210 MILLIGRAM (FE), TID

REACTIONS (2)
  - Aplastic anaemia [Unknown]
  - Aplasia pure red cell [Unknown]
